FAERS Safety Report 18322548 (Version 13)
Quarter: 2021Q2

REPORT INFORMATION
  Report Type: Spontaneous
  Country: NL (occurrence: NL)
  Receive Date: 20200928
  Receipt Date: 20210527
  Transmission Date: 20210717
  Serious: Yes (Hospitalization, Other)
  Sender: FDA-Public Use
  Company Number: NVSC2020NL258339

PATIENT
  Age: 66 Year
  Sex: Male
  Weight: 75.7 kg

DRUGS (58)
  1. CYCLOPHOSPHAMIDE. [Suspect]
     Active Substance: CYCLOPHOSPHAMIDE
     Dosage: 300 MG; 6 X 50
     Route: 048
     Dates: start: 20201106, end: 20201106
  2. DEXAMETHASONE. [Suspect]
     Active Substance: DEXAMETHASONE
     Dosage: 10 MG, BID
     Route: 048
     Dates: start: 20201009, end: 20201012
  3. DEXAMETHASONE. [Suspect]
     Active Substance: DEXAMETHASONE
     Dosage: 7.5 MG, QD
     Route: 048
     Dates: start: 20201017, end: 20201019
  4. MESNA. [Suspect]
     Active Substance: MESNA
     Indication: ACCIDENTAL EXPOSURE TO PRODUCT
     Dosage: 400 MG, TID
     Route: 042
     Dates: start: 20200910, end: 20200910
  5. FENTANYL. [Concomitant]
     Active Substance: FENTANYL
     Dosage: 100 MG, TID PRN
     Route: 060
     Dates: start: 20201207, end: 20210104
  6. PARACETAMOL [Concomitant]
     Active Substance: ACETAMINOPHEN
     Indication: PRODUCT USED FOR UNKNOWN INDICATION
     Dosage: 1000 MG, BID
     Route: 048
     Dates: start: 20200801, end: 20200817
  7. CYTARABINE. [Concomitant]
     Active Substance: CYTARABINE
     Indication: PRODUCT USED FOR UNKNOWN INDICATION
     Dosage: UNK
     Route: 065
  8. CYCLOPHOSPHAMIDE. [Suspect]
     Active Substance: CYCLOPHOSPHAMIDE
     Dosage: 1040 MG, QD
     Route: 042
     Dates: start: 20200911, end: 20200912
  9. VORICONAZOLE. [Concomitant]
     Active Substance: VORICONAZOLE
     Dosage: 200 MG, BID
     Route: 048
     Dates: start: 20200909, end: 20201010
  10. PARACETAMOL [Concomitant]
     Active Substance: ACETAMINOPHEN
     Dosage: 1000 MG, ONCE
     Route: 048
     Dates: start: 20200915, end: 20200915
  11. TEMAZEPAM. [Concomitant]
     Active Substance: TEMAZEPAM
     Dosage: 10 MG, BID
     Route: 048
     Dates: start: 20200918, end: 20200924
  12. RITUXIMAB. [Concomitant]
     Active Substance: RITUXIMAB
     Indication: PRODUCT USED FOR UNKNOWN INDICATION
     Dosage: UNK
     Route: 065
  13. NORADRENALIN [Concomitant]
     Active Substance: NOREPINEPHRINE\NOREPINEPHRINE BITARTRATE
     Indication: PRODUCT USED FOR UNKNOWN INDICATION
     Dosage: 0.2 ?G/KG (/MIN)
     Route: 042
     Dates: start: 20201009, end: 20201010
  14. FLUDARABINE [Suspect]
     Active Substance: FLUDARABINE PHOSPHATE
     Dosage: 30 MG, ONCE
     Route: 042
     Dates: start: 20200912, end: 20200912
  15. VORICONAZOLE. [Concomitant]
     Active Substance: VORICONAZOLE
     Indication: PRODUCT USED FOR UNKNOWN INDICATION
     Dosage: 338.8 MG, BID
     Route: 042
     Dates: start: 20200811, end: 20200819
  16. PARACETAMOL [Concomitant]
     Active Substance: ACETAMINOPHEN
     Dosage: 1000 MG, TID
     Route: 042
     Dates: start: 20201009, end: 20201009
  17. VALACICLOVIR [Concomitant]
     Active Substance: VALACYCLOVIR HYDROCHLORIDE
     Indication: PRODUCT USED FOR UNKNOWN INDICATION
     Dosage: 500 MG, BID
     Route: 048
     Dates: start: 20200825
  18. ANIDULAFUNGIN [Concomitant]
     Active Substance: ANIDULAFUNGIN
     Dosage: 100 MG, QD
     Route: 042
     Dates: start: 20200909, end: 20201010
  19. PLATELETS [Concomitant]
     Active Substance: HUMAN PLATELET, ALLOGENIC
     Indication: PLATELET COUNT DECREASED
     Dosage: UNK
     Route: 065
     Dates: start: 20200909, end: 20200909
  20. MOVICOLON [Concomitant]
     Active Substance: POLYETHYLENE GLYCOL 3350\POTASSIUM CHLORIDE\SODIUM BICARBONATE\SODIUM CHLORIDE
     Dosage: 13.8 MG, BID
     Route: 048
     Dates: start: 20201009, end: 20201010
  21. CYCLOPHOSPHAMIDE. [Suspect]
     Active Substance: CYCLOPHOSPHAMIDE
     Indication: PRODUCT USED FOR UNKNOWN INDICATION
     Dosage: 1040 MG, QD
     Route: 042
     Dates: start: 20200910
  22. DEXAMETHASONE. [Suspect]
     Active Substance: DEXAMETHASONE
     Indication: PRODUCT USED FOR UNKNOWN INDICATION
     Dosage: 40 MG, QD
     Route: 048
     Dates: start: 20200902, end: 20200904
  23. DEXAMETHASONE. [Suspect]
     Active Substance: DEXAMETHASONE
     Dosage: 10 MG, QID
     Route: 048
     Dates: start: 20201001, end: 20201008
  24. MESNA. [Suspect]
     Active Substance: MESNA
     Dosage: 400 MG, TID
     Route: 042
     Dates: start: 20200912, end: 20200912
  25. FENTANYL. [Concomitant]
     Active Substance: FENTANYL
     Indication: PRODUCT USED FOR UNKNOWN INDICATION
     Dosage: 12 UG Q1HR
     Route: 062
     Dates: start: 20200813, end: 20200817
  26. CARBOPLATIN. [Concomitant]
     Active Substance: CARBOPLATIN
     Indication: PRODUCT USED FOR UNKNOWN INDICATION
     Dosage: UNK
     Route: 065
     Dates: start: 20200714, end: 20200717
  27. PARACETAMOL [Concomitant]
     Active Substance: ACETAMINOPHEN
     Dosage: 500 MG, Q4HR OR PRN
     Route: 048
     Dates: start: 20200921, end: 20200923
  28. PARACETAMOL [Concomitant]
     Active Substance: ACETAMINOPHEN
     Dosage: 1000 MG, BID
     Route: 048
     Dates: start: 20201008, end: 20201008
  29. ANIDULAFUNGIN [Concomitant]
     Active Substance: ANIDULAFUNGIN
     Dosage: 20 MG, QD
     Route: 065
     Dates: start: 20200902, end: 20200902
  30. ESOMEPRAZOLE. [Concomitant]
     Active Substance: ESOMEPRAZOLE MAGNESIUM
     Indication: PRODUCT USED FOR UNKNOWN INDICATION
     Dosage: 40 MG, BID
     Route: 048
     Dates: start: 20200819, end: 20200819
  31. COTRIMOXAZOL [Concomitant]
     Active Substance: SULFAMETHOXAZOLE\TRIMETHOPRIM
     Indication: PRODUCT USED FOR UNKNOWN INDICATION
     Dosage: 480 MG, QD
     Route: 048
     Dates: start: 20200915
  32. DEXAMETHASONE. [Suspect]
     Active Substance: DEXAMETHASONE
     Dosage: 10 MG, QD
     Route: 048
     Dates: start: 20201013, end: 20201016
  33. ANIDULAFUNGIN [Concomitant]
     Active Substance: ANIDULAFUNGIN
     Indication: PRODUCT USED FOR UNKNOWN INDICATION
     Dosage: 100 MG, QD
     Route: 042
     Dates: start: 20200811, end: 20200908
  34. IBRUTINIB [Concomitant]
     Active Substance: IBRUTINIB
     Indication: PRODUCT USED FOR UNKNOWN INDICATION
     Dosage: 560 MG, QD
     Route: 048
     Dates: start: 20200813, end: 20200818
  35. RASBURICASE [Concomitant]
     Active Substance: RASBURICASE
     Indication: PRODUCT USED FOR UNKNOWN INDICATION
     Dosage: 3 MG, QD
     Route: 042
     Dates: start: 20200915, end: 20200916
  36. FILGRASTIMA [Concomitant]
     Active Substance: FILGRASTIM
     Indication: PRODUCT USED FOR UNKNOWN INDICATION
     Dosage: 48000000 UL
     Route: 058
     Dates: start: 20201012
  37. FLUDARABINE [Suspect]
     Active Substance: FLUDARABINE PHOSPHATE
     Indication: PRODUCT USED FOR UNKNOWN INDICATION
     Dosage: 30 MG, ONCE
     Route: 042
     Dates: start: 20200910, end: 20200910
  38. DEXAMETHASONE. [Suspect]
     Active Substance: DEXAMETHASONE
     Dosage: 10 MG, QD
     Route: 042
     Dates: start: 20200922, end: 20200923
  39. VORICONAZOLE. [Concomitant]
     Active Substance: VORICONAZOLE
     Dosage: 200 MG, BID
     Route: 042
     Dates: start: 20200819, end: 20200820
  40. PARACETAMOL [Concomitant]
     Active Substance: ACETAMINOPHEN
     Dosage: 500 MG, Q4HR
     Route: 042
     Dates: start: 20200916, end: 20200921
  41. VALACICLOVIR [Concomitant]
     Active Substance: VALACYCLOVIR HYDROCHLORIDE
     Dosage: 500 MG, BID
     Route: 048
     Dates: start: 20200909, end: 20200910
  42. TEMAZEPAM. [Concomitant]
     Active Substance: TEMAZEPAM
     Indication: PRODUCT USED FOR UNKNOWN INDICATION
     Dosage: 10 MG, ONCE
     Route: 048
     Dates: start: 20200914, end: 20200914
  43. TEMAZEPAM. [Concomitant]
     Active Substance: TEMAZEPAM
     Dosage: 10 MG, ONCE
     Route: 048
     Dates: start: 20200918, end: 20200918
  44. IBRUTINIB [Concomitant]
     Active Substance: IBRUTINIB
     Dosage: 140 MG, QD
     Route: 048
     Dates: start: 20200825, end: 20200915
  45. VORICONAZOLE. [Concomitant]
     Active Substance: VORICONAZOLE
     Dosage: 200 MG, BID
     Route: 048
     Dates: start: 20200825, end: 20200910
  46. VORICONAZOLE. [Concomitant]
     Active Substance: VORICONAZOLE
     Dosage: 400 MG, QD
     Route: 048
     Dates: start: 20201120, end: 20201120
  47. CLEMASTINE [Concomitant]
     Active Substance: CLEMASTINE
     Indication: PRODUCT USED FOR UNKNOWN INDICATION
     Dosage: 2 MG, ONCE
     Route: 042
     Dates: start: 20200915, end: 20200915
  48. PARACETAMOL [Concomitant]
     Active Substance: ACETAMINOPHEN
     Dosage: 1000 MG, ONCE
     Route: 048
     Dates: start: 20200922, end: 20200922
  49. PARACETAMOL [Concomitant]
     Active Substance: ACETAMINOPHEN
     Dosage: 1000 MG, QID OR AS NEEDED
     Route: 048
     Dates: start: 20201009, end: 20201011
  50. IBRUTINIB [Concomitant]
     Active Substance: IBRUTINIB
     Dosage: 140 MG, QD
     Route: 048
     Dates: start: 20200819, end: 20200826
  51. ESOMEPRAZOLE. [Concomitant]
     Active Substance: ESOMEPRAZOLE MAGNESIUM
     Dosage: 40 MG, BID
     Route: 048
     Dates: start: 20200902, end: 20200911
  52. MOVICOLON [Concomitant]
     Active Substance: POLYETHYLENE GLYCOL 3350\POTASSIUM CHLORIDE\SODIUM BICARBONATE\SODIUM CHLORIDE
     Indication: PRODUCT USED FOR UNKNOWN INDICATION
     Dosage: 13.8 G, PRN
     Route: 048
     Dates: start: 20200921
  53. CEFTRIAXON [Concomitant]
     Active Substance: CEFTRIAXONE
     Indication: PRODUCT USED FOR UNKNOWN INDICATION
     Dosage: 2000 MG
     Route: 042
     Dates: start: 20201010
  54. DEXAMETHASONE. [Suspect]
     Active Substance: DEXAMETHASONE
     Dosage: 10 MG, BID
     Route: 042
     Dates: start: 20200924, end: 20201001
  55. MESNA. [Suspect]
     Active Substance: MESNA
     Dosage: 1600 MG, BID
     Route: 048
     Dates: start: 20201106, end: 20201108
  56. FENTANYL. [Concomitant]
     Active Substance: FENTANYL
     Dosage: 100 UG, ONCE
     Route: 060
     Dates: start: 20201009, end: 20201009
  57. ESOMEPRAZOLE. [Concomitant]
     Active Substance: ESOMEPRAZOLE MAGNESIUM
     Dosage: 40 MG, QD
     Route: 048
     Dates: start: 20200912
  58. AMFOTERICINA B [Concomitant]
     Active Substance: AMPHOTERICIN B
     Indication: PRODUCT USED FOR UNKNOWN INDICATION
     Dosage: 250 MG, QD
     Route: 042
     Dates: start: 20201010

REACTIONS (27)
  - Aphasia [Recovered/Resolved]
  - Pyrexia [Recovered/Resolved]
  - Constipation [Recovered/Resolved]
  - Vomiting [Recovered/Resolved]
  - Haemophagocytic lymphohistiocytosis [Recovered/Resolved]
  - Confusional state [Not Recovered/Not Resolved]
  - Abnormal faeces [Not Recovered/Not Resolved]
  - Fall [Recovered/Resolved]
  - Cytokine release syndrome [Recovered/Resolved]
  - Accidental exposure to product [Recovered/Resolved]
  - Nausea [Recovered/Resolved]
  - Neutropenic sepsis [Recovered/Resolved]
  - Vomiting [Recovered/Resolved]
  - Pyrexia [Not Recovered/Not Resolved]
  - Infection [Unknown]
  - Nausea [Recovered/Resolved]
  - Cough [Not Recovered/Not Resolved]
  - Vomiting [Recovered/Resolved]
  - Vomiting [Not Recovered/Not Resolved]
  - Delirium [Not Recovered/Not Resolved]
  - C-reactive protein increased [Not Recovered/Not Resolved]
  - Lacrimation increased [Recovered/Resolved]
  - Balance disorder [Recovered/Resolved]
  - Fluid retention [Recovered/Resolved]
  - Vomiting [Recovered/Resolved]
  - Delirium [Recovered/Resolved]
  - Tremor [Recovered/Resolved]

NARRATIVE: CASE EVENT DATE: 20200910
